FAERS Safety Report 25574063 (Version 4)
Quarter: 2025Q4

REPORT INFORMATION
  Report Type: Spontaneous
  Country: US (occurrence: US)
  Receive Date: 20250717
  Receipt Date: 20251211
  Transmission Date: 20260118
  Serious: No
  Sender: PFIZER
  Company Number: US-PFIZER INC-202500142423

PATIENT
  Age: 73 Year
  Sex: Female

DRUGS (4)
  1. IBRANCE [Suspect]
     Active Substance: PALBOCICLIB
     Indication: Neoplasm malignant
     Dosage: 75 MG, CYCLIC (TAKE 1 TAB DAYS 1-21, THEN 7 DAYS OFF)
  2. IBRANCE [Suspect]
     Active Substance: PALBOCICLIB
     Dosage: 75 MG, CYCLIC (TAKE 1 TABLET DAILY FOR 14 DAYS, THEN OFF FOR 7 DAYS)
     Route: 048
  3. IBRANCE [Suspect]
     Active Substance: PALBOCICLIB
     Dosage: 75 MG, CYCLIC, (TAKE 1 TABLET FOR 21 DAYS AND THEN OFF A WEEK)
  4. XARELTO [Suspect]
     Active Substance: RIVAROXABAN
     Indication: Atrial fibrillation
     Dosage: UNK

REACTIONS (5)
  - Full blood count abnormal [Unknown]
  - Blood cholesterol abnormal [Unknown]
  - Rhinitis allergic [Unknown]
  - Contusion [Unknown]
  - Off label use [Unknown]
